FAERS Safety Report 4783339-X (Version None)
Quarter: 2005Q3

REPORT INFORMATION
  Report Type: 
  Country: None (occurrence: None)
  Receive Date: 20050929
  Receipt Date: 20050920
  Transmission Date: 20060218
  Serious: Yes (Hospitalization)
  Sender: FDA-Public Use
  Company Number: FR-ROCHE-418295

PATIENT
  Age: 59 Year
  Sex: Male
  Weight: 62 kg

DRUGS (5)
  1. VALIUM [Suspect]
     Indication: ANXIETY
     Dosage: 5MG STRENGTH
     Route: 048
     Dates: start: 20050711, end: 20050816
  2. VALIUM [Suspect]
     Dosage: 10MG STRENGTH
     Route: 048
     Dates: start: 20050606, end: 20050711
  3. ZOLOFT [Concomitant]
     Indication: DEPRESSION
     Dosage: DISC ON 27 JUL 2005, REINTRODUCED ON 10 AUG 2005.
     Route: 048
     Dates: start: 20050606
  4. PLAVIX [Concomitant]
     Indication: ARTERITIS
  5. FONZYLANE [Concomitant]

REACTIONS (2)
  - HALLUCINATION, VISUAL [None]
  - VISUAL DISTURBANCE [None]
